FAERS Safety Report 15613578 (Version 1)
Quarter: 2018Q4

REPORT INFORMATION
  Report Type: Spontaneous
  Country: US (occurrence: US)
  Receive Date: 20181113
  Receipt Date: 20181113
  Transmission Date: 20190205
  Serious: No
  Sender: FDA-Public Use
  Company Number: US-ARBOR PHARMACEUTICALS, LLC-US-2018ARB000380

PATIENT

DRUGS (1)
  1. GLIADEL [Suspect]
     Active Substance: CARMUSTINE
     Indication: PRODUCT USED FOR UNKNOWN INDICATION
     Dosage: UNK, 8 WAFERS (6 OUT OF 8 WERE BOKEN)
     Dates: start: 20180314

REACTIONS (2)
  - Product administration error [Unknown]
  - Device breakage [Unknown]

NARRATIVE: CASE EVENT DATE: 20180314
